FAERS Safety Report 8995874 (Version 1)
Quarter: 2013Q1

REPORT INFORMATION
  Report Type: Spontaneous
  Country: JP (occurrence: JP)
  Receive Date: 20130103
  Receipt Date: 20130103
  Transmission Date: 20140127
  Serious: Yes (Other)
  Sender: FDA-Public Use
  Company Number: JP-TEVA-100#08#2008-03375

PATIENT
  Age: 54 Year
  Sex: Male

DRUGS (3)
  1. CISPLATIN [Suspect]
     Indication: TESTICULAR SEMINOMA (PURE) STAGE II
  2. VINCRISTINE [Concomitant]
  3. BLEOMYCIN [Concomitant]

REACTIONS (4)
  - Second primary malignancy [Unknown]
  - Nausea [Unknown]
  - Abdominal discomfort [Unknown]
  - Haematuria [Unknown]
